FAERS Safety Report 18326027 (Version 1)
Quarter: 2020Q3

REPORT INFORMATION
  Report Type: Spontaneous
  Country: DE (occurrence: DE)
  Receive Date: 20200929
  Receipt Date: 20200929
  Transmission Date: 20201103
  Serious: Yes (Hospitalization)
  Sender: FDA-Public Use
  Company Number: DE-MYLANLABS-2020M1081556

PATIENT
  Age: 83 Year
  Sex: Male
  Weight: 80 kg

DRUGS (8)
  1. BENAZEPRIL AND HYDROCHLOROTHIAZIDE [Suspect]
     Active Substance: BENAZEPRIL HYDROCHLORIDE\HYDROCHLOROTHIAZIDE
     Indication: PRODUCT USED FOR UNKNOWN INDICATION
     Dosage: 10|12.5 MG, 1?0?0?0, TABLETTEN
     Route: 048
  2. QUETIAPIN [Concomitant]
     Active Substance: QUETIAPINE
     Dosage: 50 MILLIGRAM, 0?0?2?0, TABLETTEN
     Route: 048
  3. SITAGLIPTIN [Concomitant]
     Active Substance: SITAGLIPTIN
     Dosage: 100 MILLIGRAM, 1?0?0?0, TABLETTEN
     Route: 048
  4. MIRTAZAPIN [Concomitant]
     Active Substance: MIRTAZAPINE
     Dosage: 15 MILLIGRAM, 0?0?1.5?0, TABLETTEN
     Route: 048
  5. TORASEMIDE [Suspect]
     Active Substance: TORSEMIDE
     Indication: PRODUCT USED FOR UNKNOWN INDICATION
     Dosage: 10 MILLIGRAM, 1?1?0?0, TABLETTEN
     Route: 048
  6. CARBIDOPA/LEVODOPA [Suspect]
     Active Substance: CARBIDOPA\LEVODOPA
     Dosage: 25|100 MG, 0?0?1?0, TABLETTEN
     Route: 048
  7. APIXABAN [Concomitant]
     Active Substance: APIXABAN
     Dosage: 2.5 MILLIGRAM, 1?0?1?0, TABLETTEN
     Route: 048
  8. CARBIDOPA/LEVODOPA [Suspect]
     Active Substance: CARBIDOPA\LEVODOPA
     Indication: PRODUCT USED FOR UNKNOWN INDICATION
     Dosage: 25/100 MG, 1?2?1?0, RETARD?TABLETTEN
     Route: 048

REACTIONS (5)
  - Weight increased [Unknown]
  - General physical health deterioration [Unknown]
  - Constipation [Unknown]
  - Thirst [Unknown]
  - Electrolyte imbalance [Unknown]
